FAERS Safety Report 9579402 (Version 2)
Quarter: 2013Q4

REPORT INFORMATION
  Report Type: Spontaneous
  Country: US (occurrence: US)
  Receive Date: 20131001
  Receipt Date: 20131001
  Transmission Date: 20140711
  Serious: No
  Sender: FDA-Public Use
  Company Number: US-AMGEN-USASP2013017306

PATIENT
  Age: 66 Year
  Sex: Female
  Weight: 98.41 kg

DRUGS (13)
  1. ENBREL [Suspect]
     Indication: RHEUMATOID ARTHRITIS
     Dosage: 50 MG, QWK
     Route: 058
     Dates: start: 200709, end: 201301
  2. FLONASE [Concomitant]
     Dosage: UNK
  3. FOLIC ACID [Concomitant]
     Dosage: UNK
  4. GABAPENTIN [Concomitant]
     Dosage: UNK
  5. LASIX                              /00032601/ [Concomitant]
     Dosage: UNK
  6. LISINOPRIL [Concomitant]
     Dosage: UNK
  7. METHOTREXATE [Concomitant]
     Indication: RHEUMATOID ARTHRITIS
     Dosage: 25 MG, 8 TIMES WEEKLY
     Dates: start: 200610, end: 201301
  8. MULTIVITAMINS, PLAIN [Concomitant]
     Dosage: UNK
  9. PREDNISONE [Concomitant]
     Dosage: UNK
  10. VITAMIN D                          /00107901/ [Concomitant]
     Dosage: UNK
  11. VITAMIN E                          /00110501/ [Concomitant]
     Dosage: UNK
  12. XALANTAN [Concomitant]
     Dosage: UNK
  13. SIMPONI [Concomitant]
     Dosage: UNK
     Dates: start: 20130207

REACTIONS (2)
  - Bronchitis [Unknown]
  - Sinusitis [Unknown]
